FAERS Safety Report 10114560 (Version 1)
Quarter: 2014Q2

REPORT INFORMATION
  Report Type: Spontaneous
  Country: US (occurrence: US)
  Receive Date: 20140426
  Receipt Date: 20140426
  Transmission Date: 20141212
  Serious: No
  Sender: FDA-Public Use
  Company Number: US-009507513-1404USA002550

PATIENT
  Sex: Female

DRUGS (1)
  1. MIRALAX [Suspect]
     Indication: PRODUCT USED FOR UNKNOWN INDICATION
     Dosage: 8.5 G, QD
     Route: 048

REACTIONS (3)
  - Pain in extremity [Unknown]
  - Erythema [Unknown]
  - Drug prescribing error [Unknown]
